FAERS Safety Report 7819541-X (Version None)
Quarter: 2011Q4

REPORT INFORMATION
  Report Type: 
  Country: None (occurrence: None)
  Receive Date: 20111018
  Receipt Date: 20101112
  Transmission Date: 20120403
  Serious: No
  Sender: FDA-Public Use
  Company Number: US-ASTRAZENECA-2010SE54111

PATIENT
  Sex: Female
  Weight: 56.7 kg

DRUGS (6)
  1. NAPROXEN [Concomitant]
  2. SYMBICORT [Suspect]
     Dosage: 80/4.5
     Route: 055
  3. SYMBICORT [Suspect]
     Dosage: 160/4.5 2 PUFFS BID
     Route: 055
  4. LIPITOR [Concomitant]
  5. CYMBALTA [Concomitant]
  6. H2 BLOCKERS [Concomitant]

REACTIONS (2)
  - DRUG DOSE OMISSION [None]
  - TREATMENT NONCOMPLIANCE [None]
